FAERS Safety Report 4440582-7 (Version None)
Quarter: 2004Q3

REPORT INFORMATION
  Report Type: 
  Country: None (occurrence: None)
  Receive Date: 20040830
  Receipt Date: 20040812
  Transmission Date: 20050211
  Serious: Yes (Other)
  Sender: FDA-Public Use
  Company Number: 601490

PATIENT
  Age: 11 Year
  Sex: Male

DRUGS (5)
  1. HEMOFIL [Suspect]
     Indication: FACTOR VIII DEFICIENCY
     Dates: start: 19780101, end: 19860101
  2. ALBUMIN (HUMAN) [Suspect]
     Indication: FACTOR VIII DEFICIENCY
     Dates: start: 19820101
  3. KOATE (FACTOR VIII (ANTIHAEMOPHILIC FACTOR)) [Suspect]
     Indication: FACTOR VIII DEFICIENCY
     Dates: start: 19850101, end: 19870101
  4. PROFILATE (UNCODED) [Suspect]
     Indication: FACTOR VIII DEFICIENCY
     Dates: start: 19820101, end: 19850101
  5. KRIOPRECIPITAT (FACTOR VIII (ANTIHAEMOPHILIC FACTOR)) [Suspect]
     Indication: FACTOR VIII DEFICIENCY

REACTIONS (3)
  - HEPATITIS B VIRUS [None]
  - HEPATITIS C VIRUS [None]
  - HIV TEST POSITIVE [None]
